FAERS Safety Report 7119783-5 (Version None)
Quarter: 2010Q4

REPORT INFORMATION
  Report Type: 
  Country: None (occurrence: None)
  Receive Date: 20101123
  Receipt Date: 20100818
  Transmission Date: 20110411
  Serious: No
  Sender: FDA-Public Use
  Company Number: US-BRISTOL-MYERS SQUIBB COMPANY-15247117

PATIENT
  Age: 69 Year
  Sex: Male

DRUGS (4)
  1. ONGLYZA [Suspect]
     Dosage: FOR 2-3 WEEKS
  2. MICARDIS HCT [Concomitant]
  3. GLYBURIDE [Concomitant]
  4. METFORMIN HCL [Concomitant]

REACTIONS (1)
  - GOUT [None]
